FAERS Safety Report 8396950-4 (Version None)
Quarter: 2012Q2

REPORT INFORMATION
  Report Type: 
  Country: None (occurrence: None)
  Receive Date: 20120530
  Receipt Date: 20120517
  Transmission Date: 20120825
  Serious: No
  Sender: FDA-Public Use
  Company Number: US-ASTRAZENECA-2012SE31783

PATIENT
  Sex: Female

DRUGS (2)
  1. AROMASIN [Suspect]
     Route: 065
     Dates: start: 20120208
  2. ARIMIDEX [Suspect]
     Route: 048
     Dates: start: 20110401

REACTIONS (3)
  - OEDEMA PERIPHERAL [None]
  - TENDONITIS [None]
  - PAIN IN EXTREMITY [None]
